FAERS Safety Report 8060295-2 (Version None)
Quarter: 2012Q1

REPORT INFORMATION
  Report Type: 
  Country: None (occurrence: None)
  Receive Date: 20120120
  Receipt Date: 20120117
  Transmission Date: 20120608
  Serious: No
  Sender: FDA-Public Use
  Company Number: US-PFIZER INC-2012014725

PATIENT
  Sex: Female
  Weight: 65.76 kg

DRUGS (4)
  1. PREMARIN [Concomitant]
     Indication: HYSTERECTOMY
     Dosage: 0.0625 MG, DAILY
  2. LIPITOR [Suspect]
     Dosage: 20 MG, DAILY
     Route: 048
     Dates: start: 20090101
  3. LIPITOR [Suspect]
     Indication: BLOOD CHOLESTEROL INCREASED
     Dosage: 10 MG, DAILY
     Route: 048
  4. ACTONEL [Concomitant]
     Indication: OSTEOPOROSIS
     Dosage: 35 MG, WEEKLY

REACTIONS (6)
  - EXERCISE TOLERANCE DECREASED [None]
  - WEIGHT INCREASED [None]
  - DECREASED ACTIVITY [None]
  - STRESS [None]
  - BLOOD TRIGLYCERIDES INCREASED [None]
  - GENERAL PHYSICAL HEALTH DETERIORATION [None]
